FAERS Safety Report 10008376 (Version 3)
Quarter: 2014Q2

REPORT INFORMATION
  Report Type: Spontaneous
  Country: US (occurrence: US)
  Receive Date: 20140313
  Receipt Date: 20140514
  Transmission Date: 20141212
  Serious: Yes (Hospitalization, Other)
  Sender: FDA-Public Use
  Company Number: US-GILEAD-2014-0096569

PATIENT
  Sex: Female

DRUGS (3)
  1. LETAIRIS [Suspect]
     Indication: PULMONARY HYPERTENSION
     Dosage: 5 MG, QD
     Route: 065
     Dates: start: 20120104
  2. LETAIRIS [Suspect]
     Dosage: 5 MG, UNK
     Route: 065
     Dates: start: 20120103
  3. COUMADIN                           /00014802/ [Concomitant]

REACTIONS (1)
  - Accident [Not Recovered/Not Resolved]
